FAERS Safety Report 5926003-3 (Version None)
Quarter: 2008Q4

REPORT INFORMATION
  Report Type: 
  Country: None (occurrence: None)
  Receive Date: 20081021
  Receipt Date: 20081009
  Transmission Date: 20090506
  Serious: Yes (Hospitalization)
  Sender: FDA-Public Use
  Company Number: JP-PFIZER INC-2008087418

PATIENT
  Age: 68 Year
  Sex: Female
  Weight: 64 kg

DRUGS (7)
  1. CAMPTOSAR [Suspect]
     Indication: RECTAL CANCER
     Route: 042
     Dates: start: 20080826, end: 20080826
  2. ANCARON [Suspect]
     Indication: VENTRICULAR TACHYCARDIA
     Dosage: DAILY DOSE:100MG
     Route: 048
  3. LEUCOVORIN CALCIUM [Concomitant]
     Route: 042
     Dates: start: 20080826, end: 20080826
  4. ARTIST [Concomitant]
     Route: 048
  5. VALSARTAN [Concomitant]
     Route: 048
  6. LASIX [Concomitant]
     Route: 048
  7. CRESTOR [Concomitant]
     Route: 048

REACTIONS (5)
  - DYSPNOEA [None]
  - NAUSEA [None]
  - PALPITATIONS [None]
  - VENTRICULAR TACHYCARDIA [None]
  - VOMITING [None]
